FAERS Safety Report 23635991 (Version 1)
Quarter: 2024Q1

REPORT INFORMATION
  Report Type: Spontaneous
  Country: US (occurrence: US)
  Receive Date: 20240315
  Receipt Date: 20240315
  Transmission Date: 20240410
  Serious: No
  Sender: FDA-Public Use
  Company Number: US-CIPLA LTD.-2024US00991

PATIENT

DRUGS (1)
  1. LENALIDOMIDE [Suspect]
     Active Substance: LENALIDOMIDE
     Indication: Hodgkin^s disease
     Dosage: 15 MILLIGRAM, QD (15 MILLIGRAM, QD X 21 DAYS ON, 7 DAYS OFF)
     Route: 065

REACTIONS (1)
  - Nausea [Unknown]
